FAERS Safety Report 12911288 (Version 1)
Quarter: 2016Q4

REPORT INFORMATION
  Report Type: Spontaneous
  Country: PL (occurrence: PL)
  Receive Date: 20161104
  Receipt Date: 20161104
  Transmission Date: 20170207
  Serious: Yes (Hospitalization)
  Sender: FDA-Public Use
  Company Number: PL-PFIZER INC-2016503008

PATIENT
  Age: 62 Year
  Sex: Male
  Weight: 75 kg

DRUGS (4)
  1. OXALIPLATIN. [Suspect]
     Active Substance: OXALIPLATIN
     Indication: RECTAL CANCER
     Dosage: 233 MG, UNK
     Route: 042
     Dates: start: 20141110
  2. SYMLODA [Suspect]
     Active Substance: CAPECITABINE
     Indication: RECTAL CANCER
     Dosage: 3600 MG, UNK
     Route: 048
     Dates: start: 20141110, end: 20141112
  3. SYMLODA [Suspect]
     Active Substance: CAPECITABINE
     Indication: LUNG NEOPLASM MALIGNANT
  4. OXALIPLATIN. [Suspect]
     Active Substance: OXALIPLATIN
     Indication: LUNG NEOPLASM MALIGNANT

REACTIONS (5)
  - Decreased appetite [Unknown]
  - Face oedema [Unknown]
  - Asthenia [Unknown]
  - Oedema mouth [None]
  - Oedema [Unknown]

NARRATIVE: CASE EVENT DATE: 20141113
